FAERS Safety Report 9958304 (Version 1)
Quarter: 2014Q1

REPORT INFORMATION
  Report Type: Report from Study
  Country: US (occurrence: US)
  Receive Date: 20140304
  Receipt Date: 20140304
  Transmission Date: 20141002
  Serious: Yes (Hospitalization)
  Sender: FDA-Public Use
  Company Number: US-ABBVIE-13P-163-1093989-00

PATIENT
  Age: 47 Year
  Sex: Male

DRUGS (4)
  1. HUMIRA [Suspect]
     Indication: CROHN^S DISEASE
     Dates: start: 20121116, end: 20130510
  2. ASACOL [Concomitant]
     Indication: CROHN^S DISEASE
     Dosage: TAKES FOUR 3 TIMES A DAY
  3. MESALAMINE [Concomitant]
     Indication: CROHN^S DISEASE
     Dosage: IN THE EVENING
  4. MESALAMINE [Concomitant]
     Indication: COLITIS ULCERATIVE

REACTIONS (2)
  - Crohn^s disease [Not Recovered/Not Resolved]
  - Crohn^s disease [Recovered/Resolved]
